FAERS Safety Report 4929020-5 (Version None)
Quarter: 2006Q1

REPORT INFORMATION
  Report Type: 
  Country: None (occurrence: None)
  Receive Date: 20060301
  Receipt Date: 20060222
  Transmission Date: 20060701
  Serious: Yes (Life-Threatening)
  Sender: FDA-Public Use
  Company Number: GB-MERCK-0602GBR00125

PATIENT
  Age: 62 Year
  Sex: Male
  Weight: 55 kg

DRUGS (4)
  1. ZOCOR [Suspect]
     Route: 048
     Dates: start: 20050601, end: 20060215
  2. ASPIRIN [Concomitant]
     Route: 048
  3. ACETAMINOPHEN [Concomitant]
     Route: 048
  4. TRAMADOL HYDROCHLORIDE [Concomitant]
     Route: 048

REACTIONS (1)
  - ALVEOLITIS [None]
